FAERS Safety Report 15473614 (Version 1)
Quarter: 2018Q4

REPORT INFORMATION
  Report Type: Spontaneous
  Country: CH (occurrence: CH)
  Receive Date: 20181008
  Receipt Date: 20181008
  Transmission Date: 20190205
  Serious: Yes (Hospitalization)
  Sender: FDA-Public Use
  Company Number: CH-TEVA-2018-CH-961315

PATIENT
  Age: 64 Year
  Sex: Female

DRUGS (4)
  1. SYMBICORT [Suspect]
     Active Substance: BUDESONIDE\FORMOTEROL FUMARATE DIHYDRATE
     Dosage: TREATMENT START DATE NOT KNOWN
     Route: 055
  2. VOTUM [Concomitant]
     Active Substance: OLMESARTAN MEDOXOMIL
     Dosage: TREATMENT INITIATED TWO WEEKS PREVIOUSLY
     Route: 048
  3. AMLODIPIN-MEPHA [Suspect]
     Active Substance: AMLODIPINE MESYLATE
     Dosage: DRUG DISCONTINUED TWO WEEKS PREVIOUSLY,TREATMENT START DATE NOT KNOWN.
     Route: 048
     Dates: end: 201809
  4. TIROSINT [Suspect]
     Active Substance: LEVOTHYROXINE SODIUM
     Dosage: TREATMENT START DATE NOT KNOWN
     Route: 048

REACTIONS (2)
  - Eyelid oedema [Unknown]
  - Conjunctival oedema [Unknown]

NARRATIVE: CASE EVENT DATE: 201807
